FAERS Safety Report 21526968 (Version 1)
Quarter: 2022Q4

REPORT INFORMATION
  Report Type: Spontaneous
  Country: JP (occurrence: JP)
  Receive Date: 20221031
  Receipt Date: 20221031
  Transmission Date: 20230113
  Serious: Yes (Other)
  Sender: FDA-Public Use
  Company Number: JP-TTPharma-2022-JP-003739J

PATIENT
  Age: 81 Year
  Sex: Female

DRUGS (4)
  1. FAMOTIDINE [Suspect]
     Active Substance: FAMOTIDINE
     Indication: Product used for unknown indication
     Dosage: ???????
     Route: 048
     Dates: start: 2018
  2. FAMOTIDINE [Suspect]
     Active Substance: FAMOTIDINE
     Dosage: ???????
     Route: 048
     Dates: end: 20221019
  3. MEMANTINE HYDROCHLORIDE [Concomitant]
     Active Substance: MEMANTINE HYDROCHLORIDE
     Indication: Product used for unknown indication
     Dosage: ???????
     Route: 048
  4. GALANTAMINE HYDROBROMIDE [Concomitant]
     Active Substance: GALANTAMINE HYDROBROMIDE
     Indication: Product used for unknown indication
     Dosage: ???????
     Route: 048

REACTIONS (5)
  - Confusional state [Unknown]
  - Delirium [Unknown]
  - Renal impairment [Unknown]
  - Movement disorder [Unknown]
  - Emotional disorder [Unknown]

NARRATIVE: CASE EVENT DATE: 20180801
